FAERS Safety Report 9170170 (Version 2)
Quarter: 2013Q1

REPORT INFORMATION
  Report Type: Spontaneous
  Country: US (occurrence: None)
  Receive Date: 20130311
  Receipt Date: 20130326
  Transmission Date: 20140127
  Serious: Yes (Other)
  Sender: FDA-Public Use
  Company Number: 2013SA022396

PATIENT
  Age: 80 Year
  Sex: Female

DRUGS (1)
  1. ICY HOT POWER GEL [Suspect]
     Indication: HEADACHE
     Dates: start: 20130301, end: 20130303

REACTIONS (2)
  - Chemical injury [None]
  - Application site burn [None]
